FAERS Safety Report 20084636 (Version 3)
Quarter: 2022Q1

REPORT INFORMATION
  Report Type: Other
  Country: US (occurrence: None)
  Receive Date: 20211118
  Receipt Date: 20220110
  Transmission Date: 20220423
  Serious: No
  Sender: FDA-Public Use
  Company Number: US-ROCHE-2960543

PATIENT
  Age: 53 Year
  Sex: Female
  Weight: 75.818 kg

DRUGS (10)
  1. OCREVUS [Suspect]
     Active Substance: OCRELIZUMAB
     Indication: Secondary progressive multiple sclerosis
     Dosage: DATE OF TREATMENT:20/MAY/2021
     Route: 042
     Dates: start: 20171031
  2. OCREVUS [Suspect]
     Active Substance: OCRELIZUMAB
     Indication: Primary progressive multiple sclerosis
     Route: 042
     Dates: start: 20181031
  3. OCREVUS [Suspect]
     Active Substance: OCRELIZUMAB
     Indication: Relapsing-remitting multiple sclerosis
  4. ESCITALOPRAM [Concomitant]
     Active Substance: ESCITALOPRAM OXALATE
     Indication: Anxiety
     Route: 048
  5. ESCITALOPRAM [Concomitant]
     Active Substance: ESCITALOPRAM OXALATE
     Indication: Depression
  6. OXYBUTYNIN [Concomitant]
     Active Substance: OXYBUTYNIN
     Dosage: YES
     Route: 048
  7. TIZANIDINE [Concomitant]
     Active Substance: TIZANIDINE
     Indication: Muscle spasticity
     Dosage: 2 MG UP TO 4 TIMES A DAY
     Route: 048
  8. VITAMIN D3 [Concomitant]
     Active Substance: CHOLECALCIFEROL
     Dosage: DOSE=4000-5000 IUS ONCE DAILY ;ONGOING: YES
     Route: 048
  9. IBUPROFEN [Concomitant]
     Active Substance: IBUPROFEN
     Dosage: YES
     Route: 048
  10. NITROFURANTOIN [Concomitant]
     Active Substance: NITROFURANTOIN
     Indication: Urinary tract infection
     Route: 048

REACTIONS (1)
  - COVID-19 [Not Recovered/Not Resolved]

NARRATIVE: CASE EVENT DATE: 20211101
